FAERS Safety Report 17440477 (Version 1)
Quarter: 2020Q1

REPORT INFORMATION
  Report Type: Report from Study
  Country: US (occurrence: US)
  Receive Date: 20200220
  Receipt Date: 20200220
  Transmission Date: 20200409
  Serious: Yes (Other)
  Sender: FDA-Public Use
  Company Number: US-PFIZER INC-2020069463

PATIENT
  Age: 23 Year
  Sex: Female

DRUGS (6)
  1. PACLITAXEL. [Suspect]
     Active Substance: PACLITAXEL
     Dosage: UNK, CYCLIC (25-40 MG/M^2, 3 CYCLES)
     Route: 033
  2. DOXORUBICIN [Concomitant]
     Active Substance: DOXORUBICIN
     Indication: PERITONEAL MESOTHELIOMA MALIGNANT
     Dosage: 15 MG/M2, CYCLIC
     Route: 033
  3. CISPLATIN. [Concomitant]
     Active Substance: CISPLATIN
     Indication: PERITONEAL MESOTHELIOMA MALIGNANT
     Dosage: 50 MG/M2, CYCLIC
     Route: 033
  4. DEXTROSE. [Concomitant]
     Active Substance: DEXTROSE
     Dosage: 1 L, UNK  (OF 1.5% DEXTROSE PERITONEAL DIALYSIS SOLUTION)
     Route: 033
  5. PACLITAXEL. [Suspect]
     Active Substance: PACLITAXEL
     Indication: PERITONEAL MESOTHELIOMA MALIGNANT
     Dosage: 20 MG/M2, UNK
     Route: 033
  6. PORT-A-CATH [Concomitant]

REACTIONS (2)
  - Hypersensitivity [Unknown]
  - Ascites [Recovered/Resolved]
